FAERS Safety Report 18730951 (Version 7)
Quarter: 2021Q3

REPORT INFORMATION
  Report Type: Spontaneous
  Country: US (occurrence: US)
  Receive Date: 20210112
  Receipt Date: 20210713
  Transmission Date: 20211014
  Serious: Yes (Hospitalization, Other)
  Sender: FDA-Public Use
  Company Number: US-PFIZER INC-2021011568

PATIENT
  Age: 75 Year
  Sex: Male
  Weight: 90.25 kg

DRUGS (1)
  1. TOVIAZ [Suspect]
     Active Substance: FESOTERODINE FUMARATE
     Indication: CARDIAC FAILURE CONGESTIVE
     Dosage: UNK

REACTIONS (5)
  - Cardiac failure congestive [Unknown]
  - COVID-19 pneumonia [Unknown]
  - Blood pressure abnormal [Unknown]
  - Asthenia [Unknown]
  - Off label use [Unknown]

NARRATIVE: CASE EVENT DATE: 201912
